FAERS Safety Report 17673779 (Version 2)
Quarter: 2020Q2

REPORT INFORMATION
  Report Type: Spontaneous
  Country: GB (occurrence: GB)
  Receive Date: 20200416
  Receipt Date: 20200512
  Transmission Date: 20200714
  Serious: Yes (Hospitalization, Other)
  Sender: FDA-Public Use
  Company Number: GB-CELLTRION INC.-2020GB021463

PATIENT

DRUGS (5)
  1. ALEMTUZUMAB [Suspect]
     Active Substance: ALEMTUZUMAB
     Indication: AUTOIMMUNE DISORDER
     Dosage: UNK
  2. ALEMTUZUMAB [Suspect]
     Active Substance: ALEMTUZUMAB
     Indication: PROPHYLAXIS AGAINST TRANSPLANT REJECTION
  3. ALEMTUZUMAB [Suspect]
     Active Substance: ALEMTUZUMAB
     Indication: IMMUNODEFICIENCY
  4. OXYGEN. [Concomitant]
     Active Substance: OXYGEN
     Indication: SUPPLEMENTATION THERAPY
     Dosage: UNK
  5. RITUXIMAB (UNKNOWN) [Suspect]
     Active Substance: RITUXIMAB
     Indication: GLOMERULONEPHRITIS RAPIDLY PROGRESSIVE
     Dosage: UNK

REACTIONS (6)
  - Off label use [Recovered/Resolved]
  - Product use in unapproved indication [Unknown]
  - Cytomegalovirus infection reactivation [Recovered/Resolved]
  - Haematuria [Recovered/Resolved]
  - Glomerulonephritis rapidly progressive [Recovered/Resolved]
  - Product use issue [Unknown]
